FAERS Safety Report 8598516-X (Version None)
Quarter: 2012Q3

REPORT INFORMATION
  Report Type: 
  Country: None (occurrence: None)
  Receive Date: 20120806
  Receipt Date: 20120806
  Transmission Date: 20120928
  Serious: Yes (Hospitalization)
  Sender: FDA-Public Use
  Company Number: None

PATIENT
  Age: 46 Year
  Sex: Female

DRUGS (1)
  1. BACTRIM DS [Suspect]
     Dosage: BACTRIM DS 1 TAB BID PO
     Route: 048

REACTIONS (12)
  - RASH MACULO-PAPULAR [None]
  - URINARY TRACT INFECTION [None]
  - DYSPNOEA [None]
  - DYSPNOEA EXERTIONAL [None]
  - PNEUMONITIS [None]
  - PULMONARY EMBOLISM [None]
  - COUGH [None]
  - BUTTERFLY RASH [None]
  - INTERSTITIAL LUNG DISEASE [None]
  - PULMONARY TOXICITY [None]
  - PLEURITIC PAIN [None]
  - FATIGUE [None]
